FAERS Safety Report 4293878-6 (Version None)
Quarter: 2004Q1

REPORT INFORMATION
  Report Type: 
  Country: None (occurrence: None)
  Receive Date: 20040211
  Receipt Date: 20040127
  Transmission Date: 20041129
  Serious: Yes (Hospitalization, Other)
  Sender: FDA-Public Use
  Company Number: JP_031002041

PATIENT
  Age: 43 Year
  Sex: Female

DRUGS (2)
  1. ZYPREXA [Suspect]
     Indication: SCHIZOPHRENIA
     Dosage: 290 MG/1 DAY
     Dates: start: 20031020, end: 20031020
  2. LORAZEPAM [Concomitant]

REACTIONS (17)
  - ALANINE AMINOTRANSFERASE INCREASED [None]
  - ANXIETY [None]
  - ASPARTATE AMINOTRANSFERASE INCREASED [None]
  - BLOOD BILIRUBIN INCREASED [None]
  - BLOOD CREATINE PHOSPHOKINASE INCREASED [None]
  - BLOOD POTASSIUM INCREASED [None]
  - BODY TEMPERATURE INCREASED [None]
  - C-REACTIVE PROTEIN INCREASED [None]
  - CHROMATURIA [None]
  - COMA [None]
  - DELUSION [None]
  - HEPATIC FUNCTION ABNORMAL [None]
  - INSOMNIA [None]
  - INTENTIONAL OVERDOSE [None]
  - PO2 INCREASED [None]
  - SPUTUM DISCOLOURED [None]
  - SUICIDAL IDEATION [None]
